FAERS Safety Report 7041384-8 (Version None)
Quarter: 2010Q4

REPORT INFORMATION
  Report Type: 
  Country: None (occurrence: None)
  Receive Date: 20101013
  Receipt Date: 20101007
  Transmission Date: 20110411
  Serious: Yes (Other)
  Sender: FDA-Public Use
  Company Number: US-AMGEN-KDL443855

PATIENT
  Sex: Female

DRUGS (1)
  1. PROLIA [Suspect]
     Indication: OSTEOPOROSIS
     Dates: start: 20101006

REACTIONS (5)
  - FATIGUE [None]
  - NASAL CONGESTION [None]
  - RHINORRHOEA [None]
  - SNEEZING [None]
  - SWELLING FACE [None]
